FAERS Safety Report 4481971-4 (Version None)
Quarter: 2004Q4

REPORT INFORMATION
  Report Type: 
  Country: None (occurrence: None)
  Receive Date: 20041020
  Receipt Date: 20041005
  Transmission Date: 20050328
  Serious: Yes (Death, Other)
  Sender: FDA-Public Use
  Company Number: EWC040238171

PATIENT
  Age: 57 Year
  Sex: Male
  Weight: 90 kg

DRUGS (2)
  1. XIGRIS [Suspect]
     Indication: SEPSIS
     Dosage: 24 UG/KG/HR
     Dates: start: 20040223, end: 20040224
  2. ANTIBIOTICS [Concomitant]

REACTIONS (12)
  - CONDITION AGGRAVATED [None]
  - ESCHERICHIA SEPSIS [None]
  - HAEMODYNAMIC INSTABILITY [None]
  - LUNG INFILTRATION [None]
  - MULTI-ORGAN FAILURE [None]
  - NECROSIS [None]
  - PERITONITIS [None]
  - PYREXIA [None]
  - RENAL FAILURE [None]
  - RESPIRATORY FAILURE [None]
  - SHOCK [None]
  - THROMBOCYTOPENIA [None]
